FAERS Safety Report 8049525-0 (Version None)
Quarter: 2012Q1

REPORT INFORMATION
  Report Type: 
  Country: None (occurrence: None)
  Receive Date: 20120117
  Receipt Date: 20120111
  Transmission Date: 20120608
  Serious: Yes (Other)
  Sender: FDA-Public Use
  Company Number: JP-B.I. PHARMACEUTICALS,INC./RIDGEFIELD-2012-BP-00692NB

PATIENT
  Age: 82 Year
  Sex: Female
  Weight: 47.2 kg

DRUGS (6)
  1. PRADAXA [Suspect]
     Dosage: 220 MG
     Route: 048
  2. RISPERIDONE [Concomitant]
     Dosage: 2 MG
     Route: 048
  3. CARVEDILOL [Suspect]
     Dosage: 2.5 MG
     Route: 048
  4. CEFAZOLIN SODIUM [Suspect]
     Dosage: 3 G
     Route: 048
  5. GOODMIN [Concomitant]
     Dosage: 0.25 MG
     Route: 048
  6. FAMOTIDINE [Suspect]
     Dosage: 20 MG
     Route: 048

REACTIONS (1)
  - CEREBRAL INFARCTION [None]
